FAERS Safety Report 18297320 (Version 4)
Quarter: 2020Q4

REPORT INFORMATION
  Report Type: Report from Study
  Country: US (occurrence: US)
  Receive Date: 20200922
  Receipt Date: 20201116
  Transmission Date: 20210113
  Serious: Yes (Death, Hospitalization)
  Sender: FDA-Public Use
  Company Number: US-EXELIXIS-CABO-20033021

PATIENT
  Sex: Male
  Weight: 106.58 kg

DRUGS (8)
  1. SENNA-S [Concomitant]
     Active Substance: DOCUSATE SODIUM\SENNOSIDES
     Dosage: UNK
  2. LENVIMA [Concomitant]
     Active Substance: LENVATINIB
  3. KEPPRA [Concomitant]
     Active Substance: LEVETIRACETAM
     Dosage: UNK
  4. CABOMETYX [Suspect]
     Active Substance: CABOZANTINIB S-MALATE
     Indication: RENAL CANCER
     Dosage: 60 MG, QD
     Route: 048
     Dates: start: 20200608
  5. CARVEDILOL. [Concomitant]
     Active Substance: CARVEDILOL
     Dosage: UNK
  6. LEVOTHYROXINE SODIUM. [Concomitant]
     Active Substance: LEVOTHYROXINE SODIUM
     Dosage: UNK
  7. CABOMETYX [Suspect]
     Active Substance: CABOZANTINIB S-MALATE
     Dosage: 60 MG (MONDAY-FRIDAY)
     Route: 048
     Dates: end: 20200916
  8. MAGNESIUM OXIDE. [Concomitant]
     Active Substance: MAGNESIUM OXIDE
     Dosage: UNK

REACTIONS (15)
  - Blood calcium increased [Unknown]
  - Blood potassium decreased [Unknown]
  - Thrombosis [Unknown]
  - Pyrexia [Unknown]
  - Liver disorder [Unknown]
  - Pneumonia [Unknown]
  - Inappropriate schedule of product administration [Unknown]
  - Dehydration [Unknown]
  - Fatigue [Unknown]
  - Blood sodium decreased [Unknown]
  - Constipation [Unknown]
  - Blood pressure increased [Unknown]
  - Haematochezia [Unknown]
  - Malignant neoplasm progression [Fatal]
  - Nausea [Unknown]
